FAERS Safety Report 20527198 (Version 2)
Quarter: 2022Q1

REPORT INFORMATION
  Report Type: Report from Study
  Country: US (occurrence: US)
  Receive Date: 20220228
  Receipt Date: 20220308
  Transmission Date: 20220423
  Serious: Yes (Hospitalization, Other)
  Sender: FDA-Public Use
  Company Number: US-BIOGEN-2022BI01098520

PATIENT
  Sex: Female

DRUGS (1)
  1. VUMERITY [Suspect]
     Active Substance: DIROXIMEL FUMARATE
     Indication: Multiple sclerosis
     Route: 065
     Dates: start: 20200117

REACTIONS (13)
  - Post procedural sepsis [Unknown]
  - Urinary tract infection [Recovered/Resolved]
  - Localised infection [Recovered/Resolved]
  - Fall [Recovered/Resolved]
  - Femur fracture [Unknown]
  - Skeletal injury [Unknown]
  - Joint injury [Unknown]
  - Tooth fracture [Unknown]
  - Confusional state [Unknown]
  - Muscle spasms [Unknown]
  - Constipation [Unknown]
  - Multiple sclerosis [Unknown]
  - Pain [Unknown]
